FAERS Safety Report 8521534 (Version 3)
Quarter: 2013Q1

REPORT INFORMATION
  Report Type: Spontaneous
  Country: CA (occurrence: CA)
  Receive Date: 20120419
  Receipt Date: 20130313
  Transmission Date: 20140127
  Serious: Yes (Hospitalization)
  Sender: FDA-Public Use
  Company Number: CA-US-EMD SERONO, INC.-7125750

PATIENT
  Age: 58 Year
  Sex: Female

DRUGS (6)
  1. REBIF [Suspect]
     Indication: MULTIPLE SCLEROSIS
     Route: 058
     Dates: start: 20010108
  2. PLAVIX [Concomitant]
     Indication: PRODUCT USED FOR UNKNOWN INDICATION
     Dates: start: 201203
  3. CRESTOR [Concomitant]
     Indication: PRODUCT USED FOR UNKNOWN INDICATION
     Dates: start: 201203
  4. MONOCOR [Concomitant]
     Indication: PRODUCT USED FOR UNKNOWN INDICATION
  5. ASA [Concomitant]
     Indication: PRODUCT USED FOR UNKNOWN INDICATION
  6. NITROGLYCERIN [Concomitant]
     Indication: PRODUCT USED FOR UNKNOWN INDICATION

REACTIONS (3)
  - Angioplasty [Unknown]
  - Injection site bruising [Recovered/Resolved with Sequelae]
  - Injection site erythema [Recovered/Resolved with Sequelae]
